FAERS Safety Report 24101236 (Version 2)
Quarter: 2025Q1

REPORT INFORMATION
  Report Type: Report from Study
  Country: US (occurrence: US)
  Receive Date: 20240717
  Receipt Date: 20250204
  Transmission Date: 20250408
  Serious: Yes (Death, Hospitalization)
  Sender: AMNEAL
  Company Number: US-AMNEAL PHARMACEUTICALS-2024-AMRX-02522

PATIENT
  Age: 91 Year
  Sex: Male

DRUGS (4)
  1. CARBIDOPA\LEVODOPA [Suspect]
     Active Substance: CARBIDOPA\LEVODOPA
     Indication: Product used for unknown indication
     Dosage: (36.25-145MG) TAKE 2 CAPSULES AT 5AM, 1 CAPSULE AT 10AM, 1 CAPSULE AT 3PM, AND 1 CAPSULE AT 8PM
     Route: 048
  2. CARBIDOPA\LEVODOPA [Suspect]
     Active Substance: CARBIDOPA\LEVODOPA
     Dosage: (36.25-145MG) TAKE 2 CAPSULES BY MOUTH AT 10AM, 1 AT 3PM AND 1 CAPSULE AT 8PM
     Route: 048
  3. CARBIDOPA\LEVODOPA [Suspect]
     Active Substance: CARBIDOPA\LEVODOPA
     Dosage: (36.25-145MG) TAKE 2 CAPSULES AT 5AM, 1 CAPSULE AT 10AM, 1 CAPSULE AT 3PM, AND 1 CAPSULE AT 8PM
     Route: 048
  4. CARBIDOPA\LEVODOPA [Suspect]
     Active Substance: CARBIDOPA\LEVODOPA
     Dosage: RYTARY 36.25-145MG 2 CAPS AT 5AM AND 3PM, AND 1 CAP AT 10 AM AND 8 PM,
     Route: 048
     Dates: start: 20231221

REACTIONS (4)
  - Death [Fatal]
  - Hospitalisation [Unknown]
  - Product use issue [Unknown]
  - Product dose omission issue [Unknown]

NARRATIVE: CASE EVENT DATE: 20230911
